APPROVED DRUG PRODUCT: PARAPLATIN
Active Ingredient: CARBOPLATIN
Strength: 150MG/VIAL **Federal Register determination that product was not discontinued or withdrawn for safety or effectiveness reasons**
Dosage Form/Route: INJECTABLE;INJECTION
Application: N019880 | Product #002
Applicant: CORDEN PHARMA LATINA SPA
Approved: Mar 3, 1989 | RLD: Yes | RS: No | Type: DISCN